FAERS Safety Report 7157463-0 (Version None)
Quarter: 2010Q4

REPORT INFORMATION
  Report Type: 
  Country: None (occurrence: None)
  Receive Date: 20101214
  Receipt Date: 20101206
  Transmission Date: 20110411
  Serious: Yes (Hospitalization)
  Sender: FDA-Public Use
  Company Number: B0687564A

PATIENT
  Sex: Female

DRUGS (5)
  1. ZOPHREN [Suspect]
     Dosage: 8MG PER DAY
     Route: 042
     Dates: start: 20101006, end: 20101006
  2. CISPLATIN [Suspect]
     Indication: OVARIAN CANCER
     Dosage: 30MG PER DAY
     Route: 042
     Dates: start: 20101006, end: 20101006
  3. ENDOXAN [Suspect]
     Indication: OVARIAN CANCER
     Dosage: 900MG PER DAY
     Route: 042
     Dates: start: 20101006, end: 20101006
  4. METHYLPREDNISOLONE [Suspect]
     Dosage: 60MG PER DAY
     Route: 042
     Dates: start: 20101006, end: 20101006
  5. EMEND [Suspect]
     Dosage: 125MG PER DAY
     Route: 048
     Dates: start: 20101006, end: 20101006

REACTIONS (2)
  - ERYTHEMA [None]
  - PARAESTHESIA [None]
